FAERS Safety Report 23701186 (Version 2)
Quarter: 2024Q2

REPORT INFORMATION
  Report Type: Report from Study
  Country: TW (occurrence: None)
  Receive Date: 20240403
  Receipt Date: 20240404
  Transmission Date: 20240715
  Serious: Yes (Death)
  Sender: FDA-Public Use
  Company Number: 2022A335798

PATIENT
  Age: 75 Year
  Sex: Male

DRUGS (1)
  1. IMFINZI [Suspect]
     Active Substance: DURVALUMAB
     Dosage: 500.0MG UNKNOWN
     Route: 042
     Dates: start: 20220112

REACTIONS (1)
  - Abdominal infection [Fatal]

NARRATIVE: CASE EVENT DATE: 20220812
